FAERS Safety Report 8395369-X (Version None)
Quarter: 2012Q2

REPORT INFORMATION
  Report Type: 
  Country: None (occurrence: None)
  Receive Date: 20120530
  Receipt Date: 20120521
  Transmission Date: 20120825
  Serious: Yes (Hospitalization)
  Sender: FDA-Public Use
  Company Number: US-BAYER-2012-050302

PATIENT
  Age: 82 Year
  Sex: Male

DRUGS (12)
  1. ASPIRIN [Suspect]
  2. SAXAGLIPTIN [Suspect]
     Indication: TYPE 2 DIABETES MELLITUS
     Dosage: UNK
     Dates: start: 20110113
  3. INSULIN ASPART [Suspect]
     Indication: DIABETES MELLITUS
     Dosage: DAILY DOSE 108 IU
  4. HMG COA REDUCTASE INHIBITORS [Concomitant]
  5. METRONIDAZOLE [Concomitant]
  6. BLOOD TRANSFUSION, AUXILIARY PRODUCTS [Suspect]
  7. INSULIN GLARGINE [Suspect]
     Indication: DIABETES MELLITUS
     Dosage: DAILY DOSE 110 IU
  8. METFORMIN HCL [Suspect]
     Indication: DIABETES MELLITUS
     Dosage: DAILY DOSE 2000 MG
  9. WARFARIN SODIUM [Suspect]
     Indication: ATRIAL FIBRILLATION
  10. BETA BLOCKING AGENTS [Concomitant]
  11. ANGIOTENSIN II ANTAGONISTS [Concomitant]
  12. CIPROFLOXACIN [Concomitant]
     Dosage: UNK
     Dates: start: 20110520

REACTIONS (5)
  - ABDOMINAL PAIN UPPER [None]
  - HAEMATEMESIS [None]
  - FAECES DISCOLOURED [None]
  - NAUSEA [None]
  - GASTRIC ULCER HAEMORRHAGE [None]
